FAERS Safety Report 26186035 (Version 1)
Quarter: 2025Q4

REPORT INFORMATION
  Report Type: Spontaneous
  Country: US (occurrence: None)
  Receive Date: 20251220
  Receipt Date: 20251220
  Transmission Date: 20260117
  Serious: No
  Sender: FDA-CTU
  Company Number: None

PATIENT
  Age: 74 Year
  Sex: Female
  Weight: 69.75 kg

DRUGS (2)
  1. MONTELUKAST SODIUM [Suspect]
     Active Substance: MONTELUKAST SODIUM
     Indication: Mast cell activation syndrome
     Dosage: FREQUENCY : AT BEDTIME;
     Route: 048
     Dates: start: 20251218, end: 20251220
  2. ELIQUIS [Concomitant]
     Active Substance: APIXABAN

REACTIONS (2)
  - Mastocytosis [None]
  - Pain [None]

NARRATIVE: CASE EVENT DATE: 20251220
